FAERS Safety Report 9095803 (Version 2)
Quarter: 2013Q1

REPORT INFORMATION
  Report Type: Spontaneous
  Country: DE (occurrence: DE)
  Receive Date: 20130219
  Receipt Date: 20130306
  Transmission Date: 20140127
  Serious: Yes (Other)
  Sender: FDA-Public Use
  Company Number: DE-TEVA-384825GER

PATIENT
  Age: 37 Year
  Sex: Female
  Weight: 60 kg

DRUGS (3)
  1. ERYTHROMYCIN [Suspect]
     Indication: BRONCHITIS
     Dosage: 1500 MILLIGRAM DAILY;
     Route: 048
     Dates: start: 20130205, end: 20130211
  2. IBUPROFEN [Suspect]
     Indication: BRONCHITIS
     Dosage: 1200 MILLIGRAM DAILY;
     Route: 048
     Dates: start: 20130205, end: 20130211
  3. VIANI [Concomitant]
     Indication: ASTHMA
     Dosage: 2 DOSAGE FORMS DAILY; 2X1 PUFF PER DAY
     Route: 055

REACTIONS (2)
  - Gastric haemorrhage [Recovered/Resolved]
  - Melaena [Recovered/Resolved]
